FAERS Safety Report 9717527 (Version 2)
Quarter: 2013Q4

REPORT INFORMATION
  Report Type: Spontaneous
  Country: US (occurrence: US)
  Receive Date: 20131127
  Receipt Date: 20131127
  Transmission Date: 20140711
  Serious: No
  Sender: FDA-Public Use
  Company Number: US-GILEAD-2009-0020826

PATIENT
  Sex: Female
  Weight: 74.84 kg

DRUGS (16)
  1. LETAIRIS [Suspect]
     Indication: PULMONARY ARTERIAL HYPERTENSION
     Route: 048
     Dates: start: 20090303
  2. PERCOCET [Concomitant]
  3. CYTOXAN [Concomitant]
  4. LASIX [Concomitant]
  5. COZAAR [Concomitant]
  6. HYDROCHLOROTHIAZIDE [Concomitant]
  7. SPIRIVA [Concomitant]
  8. ATIVAN [Concomitant]
  9. LEXAPRO [Concomitant]
  10. BENADRYL [Concomitant]
  11. PREDNISONE [Concomitant]
  12. POTASSIUM CHLORIDE [Concomitant]
  13. ZYRTEC [Concomitant]
  14. ZANTAC [Concomitant]
  15. PREVACID [Concomitant]
  16. FOLIC ACID [Concomitant]

REACTIONS (1)
  - Headache [Unknown]
